FAERS Safety Report 6581720-X (Version None)
Quarter: 2010Q1

REPORT INFORMATION
  Report Type: 
  Country: None (occurrence: None)
  Receive Date: 20100215
  Receipt Date: 20100201
  Transmission Date: 20100710
  Serious: Yes (Other)
  Sender: FDA-Public Use
  Company Number: PHEH2008US07076

PATIENT
  Sex: Female

DRUGS (2)
  1. ZOMETA [Suspect]
     Indication: BREAST CANCER METASTATIC
     Dosage: 4 MG, UNK
     Route: 042
     Dates: start: 20040101
  2. FEMARA [Concomitant]

REACTIONS (13)
  - ANXIETY [None]
  - ATELECTASIS [None]
  - EMOTIONAL DISTRESS [None]
  - METASTATIC NEOPLASM [None]
  - MULTIPLE SCLEROSIS [None]
  - OSTEONECROSIS [None]
  - OSTEOPENIA [None]
  - PAIN [None]
  - PHYSICAL DISABILITY [None]
  - SCAR [None]
  - SPINAL OSTEOARTHRITIS [None]
  - SPONDYLOLISTHESIS [None]
  - VERTEBRAL WEDGING [None]
